FAERS Safety Report 15868579 (Version 2)
Quarter: 2019Q1

REPORT INFORMATION
  Report Type: Report from Study
  Country: None (occurrence: GB)
  Receive Date: 20190125
  Receipt Date: 20190304
  Transmission Date: 20190417
  Serious: Yes (Other)
  Sender: FDA-Public Use
  Company Number: GB-ABBVIE-19S-167-2635690-00

PATIENT
  Sex: Male

DRUGS (1)
  1. DUODOPA [Suspect]
     Active Substance: CARBIDOPA\LEVODOPA
     Indication: PARKINSON^S DISEASE
     Dosage: 5MG/1ML, 20MG/1ML CASSETTE 1 DAY
     Route: 050

REACTIONS (5)
  - On and off phenomenon [Unknown]
  - Freezing phenomenon [Unknown]
  - Brain neoplasm [Unknown]
  - Muscle rigidity [Unknown]
  - Abnormal dreams [Unknown]

NARRATIVE: CASE EVENT DATE: 2019
